FAERS Safety Report 9880823 (Version 1)
Quarter: 2014Q1

REPORT INFORMATION
  Report Type: Report from Study
  Country: US (occurrence: US)
  Receive Date: 20140207
  Receipt Date: 20140207
  Transmission Date: 20141002
  Serious: Yes (Hospitalization, Other)
  Sender: FDA-Public Use
  Company Number: US-ALEXION PHARMACEUTICALS INC.-A201300634

PATIENT
  Age: 23 Year
  Sex: Male

DRUGS (2)
  1. SOLIRIS [Suspect]
     Indication: HAEMOLYTIC URAEMIC SYNDROME
     Dosage: Q2W
  2. SOLIRIS [Suspect]
     Dosage: UNK
     Dates: start: 20130307

REACTIONS (4)
  - Hospitalisation [Unknown]
  - Cardiac failure [Unknown]
  - Cardiomyopathy [Unknown]
  - Drug dose omission [Unknown]
